FAERS Safety Report 21686336 (Version 3)
Quarter: 2025Q2

REPORT INFORMATION
  Report Type: Spontaneous
  Country: DE (occurrence: DE)
  Receive Date: 20221206
  Receipt Date: 20250609
  Transmission Date: 20250716
  Serious: Yes (Life-Threatening, Hospitalization, Other)
  Sender: AUROBINDO
  Company Number: DE-TILLOMEDPR-2022-EPL-003599

PATIENT
  Age: 70 Year
  Sex: Male

DRUGS (11)
  1. PANTOPRAZOLE SODIUM I.V. [Interacting]
     Active Substance: PANTOPRAZOLE SODIUM
     Indication: Product used for unknown indication
     Route: 065
  2. DAPSONE [Interacting]
     Active Substance: DAPSONE
     Indication: Pemphigoid
     Route: 065
  3. DAPSONE [Suspect]
     Active Substance: DAPSONE
     Indication: Immunomodulatory therapy
     Route: 065
  4. AMLODIPINE [Concomitant]
     Active Substance: AMLODIPINE BESYLATE
     Indication: Product used for unknown indication
     Route: 065
  5. CANDESARTAN [Concomitant]
     Active Substance: CANDESARTAN
     Indication: Product used for unknown indication
     Route: 065
  6. DIMETHINDENE [Concomitant]
     Active Substance: DIMETHINDENE
     Indication: Product used for unknown indication
     Route: 065
  7. FOLATE SODIUM [Concomitant]
     Active Substance: FOLATE SODIUM
     Indication: Product used for unknown indication
     Route: 065
  8. DIMENHYDRINATE [Concomitant]
     Active Substance: DIMENHYDRINATE
     Indication: Product used for unknown indication
     Route: 065
  9. Folac [Concomitant]
     Indication: Product used for unknown indication
     Route: 065
  10. METHYLENE BLUE [Concomitant]
     Active Substance: METHYLENE BLUE
     Indication: Product used for unknown indication
     Route: 042
  11. SODIUM ASCORBATE [Concomitant]
     Active Substance: SODIUM ASCORBATE
     Indication: Product used for unknown indication
     Route: 042

REACTIONS (13)
  - Methaemoglobinaemia [Recovered/Resolved]
  - Hypoxia [Recovered/Resolved]
  - Drug interaction [Unknown]
  - Mental status changes [Recovered/Resolved]
  - Cyanosis [Recovered/Resolved]
  - Delirium [Recovered/Resolved]
  - Depressed level of consciousness [Recovered/Resolved]
  - Personality change [Recovered/Resolved]
  - Generalised tonic-clonic seizure [Recovered/Resolved]
  - Leukocyturia [Recovered/Resolved]
  - Tachypnoea [Recovered/Resolved]
  - Supraventricular tachycardia [Recovered/Resolved]
  - Off label use [Unknown]
